FAERS Safety Report 18739459 (Version 1)
Quarter: 2021Q1

REPORT INFORMATION
  Report Type: Spontaneous
  Country: US (occurrence: US)
  Receive Date: 20210108
  Receipt Date: 20210108
  Transmission Date: 20210419
  Serious: Yes (Hospitalization)
  Sender: FDA-Public Use
  Company Number: None

PATIENT
  Age: 39 Year
  Sex: Male
  Weight: 155 kg

DRUGS (1)
  1. HYDROCHLOROTHIAZIDE/LISINOPRIL (HYDROCHLORTHIAZIDE 12.5MG/LISINOPRIL [Suspect]
     Active Substance: HYDROCHLOROTHIAZIDE\LISINOPRIL
     Indication: HYPERTENSION
     Dosage: ?          OTHER DOSE:12.5/10 MG;?
     Route: 048
     Dates: start: 20190328, end: 20200908

REACTIONS (1)
  - Angioedema [None]

NARRATIVE: CASE EVENT DATE: 20200908
